FAERS Safety Report 9300986 (Version 1)
Quarter: 2013Q2

REPORT INFORMATION
  Report Type: Spontaneous
  Country: US (occurrence: US)
  Receive Date: 20130521
  Receipt Date: 20130521
  Transmission Date: 20140414
  Serious: Yes (Hospitalization, Other)
  Sender: FDA-Public Use
  Company Number: US-CUBIST PHARMACEUTICALS, INC.-2013CBST000403

PATIENT
  Sex: 0

DRUGS (1)
  1. CUBICIN [Suspect]
     Indication: STAPHYLOCOCCAL BACTERAEMIA
     Dosage: 8 MG/KG, Q24H
     Route: 042

REACTIONS (4)
  - Endocarditis [Recovered/Resolved]
  - Leukocytosis [Recovered/Resolved]
  - Antimicrobial susceptibility test resistant [Unknown]
  - Treatment failure [Unknown]
